FAERS Safety Report 23468807 (Version 1)
Quarter: 2024Q1

REPORT INFORMATION
  Report Type: Spontaneous
  Country: CH (occurrence: CH)
  Receive Date: 20240202
  Receipt Date: 20240202
  Transmission Date: 20240410
  Serious: Yes (Other)
  Sender: FDA-Public Use
  Company Number: None

PATIENT
  Age: 60 Year
  Sex: Male

DRUGS (9)
  1. HERCEPTIN [Suspect]
     Active Substance: TRASTUZUMAB
     Indication: Oesophageal adenocarcinoma
     Route: 041
     Dates: start: 20230220, end: 20231114
  2. FLUOROURACIL\LEUCOVORIN CALCIUM\OXALIPLATIN [Suspect]
     Active Substance: FLUOROURACIL\LEUCOVORIN CALCIUM\OXALIPLATIN
     Indication: Oesophageal adenocarcinoma
     Dosage: FOLFOX 6 STATIONARY MODIFIED): 5-FLUOROURACIL (400: D1, 15 + 1200: D1, 2, 15, 16), OXALIPLATIN
     Route: 041
     Dates: start: 20230220, end: 20230506
  3. FLUOROURACIL\LEUCOVORIN CALCIUM\OXALIPLATIN [Suspect]
     Active Substance: FLUOROURACIL\LEUCOVORIN CALCIUM\OXALIPLATIN
     Dosage: FOLFOX6 OUTPATIENT (MODIFIED): 5-FLUOROURACIL (400+2400: 1D + 22H PUMP: D1.15), OXALIPLATIN (85.
     Route: 041
     Dates: start: 20230515, end: 20230810
  4. VALPROATE SODIUM [Concomitant]
     Active Substance: VALPROATE SODIUM
  5. KEPPRA [Concomitant]
     Active Substance: LEVETIRACETAM
  6. FOLIC ACID [Concomitant]
     Active Substance: FOLIC ACID
  7. LEVOTHYROXINE [Concomitant]
     Active Substance: LEVOTHYROXINE\LEVOTHYROXINE SODIUM
  8. PANTOZOL [Concomitant]
     Active Substance: PANTOPRAZOLE SODIUM
  9. VITAMIN B1 [Concomitant]
     Active Substance: THIAMINE HYDROCHLORIDE

REACTIONS (2)
  - Demyelinating polyneuropathy [Not Recovered/Not Resolved]
  - Peripheral sensory neuropathy [Not Recovered/Not Resolved]

NARRATIVE: CASE EVENT DATE: 20231118
